FAERS Safety Report 16260633 (Version 1)
Quarter: 2019Q2

REPORT INFORMATION
  Report Type: Spontaneous
  Country: US (occurrence: US)
  Receive Date: 20190501
  Receipt Date: 20190501
  Transmission Date: 20190711
  Serious: Yes (Other)
  Sender: FDA-Public Use
  Company Number: US-AKORN PHARMACEUTICALS-2019AKN00525

PATIENT
  Age: 25 Year
  Sex: Female

DRUGS (5)
  1. DEPO HORMONE SHOT [Concomitant]
  2. MYORISAN [Suspect]
     Active Substance: ISOTRETINOIN
     Dosage: UNK
     Dates: start: 20180801, end: 201812
  3. MYORISAN [Suspect]
     Active Substance: ISOTRETINOIN
     Dosage: 40 MG, 2X/DAY
     Dates: start: 20181012, end: 201812
  4. YAZ [Concomitant]
     Active Substance: DROSPIRENONE\ETHINYL ESTRADIOL
  5. UNSPECIFIED BIRTH CONTROL PILLS [Concomitant]
     Active Substance: UNSPECIFIED INGREDIENT

REACTIONS (3)
  - Abortion induced [Recovered/Resolved]
  - Treatment noncompliance [Recovered/Resolved]
  - Drug exposure before pregnancy [Recovered/Resolved]

NARRATIVE: CASE EVENT DATE: 2018
